FAERS Safety Report 12733075 (Version 1)
Quarter: 2016Q3

REPORT INFORMATION
  Report Type: Spontaneous
  Country: GB (occurrence: GB)
  Receive Date: 20160912
  Receipt Date: 20160912
  Transmission Date: 20161109
  Serious: Yes (Death)
  Sender: FDA-Public Use
  Company Number: GB-TEVA-690777ACC

PATIENT
  Age: 89 Year
  Sex: Male

DRUGS (7)
  1. WARFARIN [Suspect]
     Active Substance: WARFARIN
     Indication: ATRIAL FIBRILLATION
     Dosage: DATE STARTED: GREATER THAN 5 YEARS AGO.
     Route: 048
  2. SPIRONOLACTONE. [Concomitant]
     Active Substance: SPIRONOLACTONE
     Indication: CARDIAC FAILURE
     Route: 048
  3. BISOPROLOL [Concomitant]
     Active Substance: BISOPROLOL
     Indication: ATRIAL FIBRILLATION
     Route: 048
  4. FENBID [Concomitant]
     Active Substance: IBUPROFEN
     Indication: BACK PAIN
     Dosage: 2 DOSAGE FORMS DAILY;
     Route: 061
  5. SIMVASTATIN. [Concomitant]
     Active Substance: SIMVASTATIN
     Indication: ATRIAL FIBRILLATION
     Route: 048
  6. ADCAL-D3 [Concomitant]
     Active Substance: CALCIUM CARBONATE\CHOLECALCIFEROL
     Indication: OSTEOPOROSIS
     Dosage: 2 DOSAGE FORMS DAILY;
     Route: 048
  7. LANSOPRAZOLE. [Concomitant]
     Active Substance: LANSOPRAZOLE
     Indication: GASTROOESOPHAGEAL REFLUX DISEASE
     Route: 048

REACTIONS (1)
  - Cardiac arrest [Fatal]
